FAERS Safety Report 16936993 (Version 3)
Quarter: 2020Q1

REPORT INFORMATION
  Report Type: Spontaneous
  Country: TW (occurrence: TW)
  Receive Date: 20191018
  Receipt Date: 20200319
  Transmission Date: 20200409
  Serious: Yes (Other)
  Sender: FDA-Public Use
  Company Number: TW-PFIZER INC-2018207830

PATIENT
  Age: 49 Year
  Sex: Female

DRUGS (6)
  1. SUTENT [Suspect]
     Active Substance: SUNITINIB MALATE
     Dosage: 50 MG, CYCLIC (4 DF OF 12.5 MG ONCE DAILY, TWO WEEKS ON ONE WEEK OFF)
     Route: 048
     Dates: start: 20180612, end: 2018
  2. SUTENT [Suspect]
     Active Substance: SUNITINIB MALATE
     Dosage: 50 MG, CYCLIC (4 DF OF 12.5 MG ONCE DAILY, TWO WEEKS ON, ONE WEEK OFF)
     Route: 048
     Dates: start: 20180705
  3. SUTENT [Suspect]
     Active Substance: SUNITINIB MALATE
     Dosage: 75 MG, CYCLIC (5 DF OF 12.5 MG ONCE DAILY, TWO WEEKS ON, ONE WEEK OFF)
     Route: 048
     Dates: start: 20191014
  4. SUTENT [Suspect]
     Active Substance: SUNITINIB MALATE
     Indication: RENAL CELL CARCINOMA
     Dosage: 37.5 MG, CYCLIC (DAILY, TWO WEEKS ON AND ONE WEEK OFF)
     Route: 048
     Dates: start: 20180401, end: 2018
  5. SUTENT [Suspect]
     Active Substance: SUNITINIB MALATE
     Dosage: 37.5 MG, CYCLIC (3 DF OF 12.5 MG ONCE DAILY, TWO WEEKS ON ONE WEEK OFF)
     Route: 048
     Dates: start: 201806, end: 2018
  6. SUTENT [Suspect]
     Active Substance: SUNITINIB MALATE
     Dosage: 50 MG, CYCLIC (ONCE DAILY 2 WEEKS ON AND 1 WEEK OFF)
     Route: 048

REACTIONS (25)
  - Hypothyroidism [Not Recovered/Not Resolved]
  - Dry mouth [Not Recovered/Not Resolved]
  - Lacrimation increased [Recovered/Resolved]
  - Depressed mood [Unknown]
  - Pulmonary oedema [Unknown]
  - Decreased appetite [Recovered/Resolved]
  - Dry eye [Unknown]
  - Oedema peripheral [Recovered/Resolved]
  - Constipation [Recovered/Resolved]
  - Gingival atrophy [Recovered/Resolved]
  - Cough [Unknown]
  - Mouth ulceration [Recovered/Resolved]
  - Swelling face [Not Recovered/Not Resolved]
  - Hypertension [Recovered/Resolved]
  - Gingival swelling [Recovering/Resolving]
  - Gingival bleeding [Unknown]
  - Abdominal distension [Recovered/Resolved]
  - Hypogeusia [Recovered/Resolved]
  - Yellow skin [Recovered/Resolved]
  - Peripheral swelling [Not Recovered/Not Resolved]
  - Face oedema [Recovered/Resolved]
  - Palmar-plantar erythrodysaesthesia syndrome [Not Recovered/Not Resolved]
  - Rash erythematous [Unknown]
  - Oedema [Recovered/Resolved]
  - Oral pain [Not Recovered/Not Resolved]

NARRATIVE: CASE EVENT DATE: 2018
